FAERS Safety Report 15458605 (Version 1)
Quarter: 2018Q4

REPORT INFORMATION
  Report Type: Spontaneous
  Country: DE (occurrence: DE)
  Receive Date: 20181003
  Receipt Date: 20181003
  Transmission Date: 20190204
  Serious: Yes (Other)
  Sender: FDA-Public Use
  Company Number: DE-AUROBINDO-AUR-APL-2016-05498

PATIENT
  Age: 56 Year
  Sex: Male

DRUGS (5)
  1. OXALIPLATIN. [Suspect]
     Active Substance: OXALIPLATIN
     Dosage: UNK, CYCLICAL
     Route: 065
  2. FLUOROURACIL. [Suspect]
     Active Substance: FLUOROURACIL
     Indication: COLORECTAL ADENOCARCINOMA
     Route: 065
  3. OXALIPLATIN. [Suspect]
     Active Substance: OXALIPLATIN
     Indication: COLORECTAL ADENOCARCINOMA
     Dosage: UNK,8 CYCLE
     Route: 065
  4. XELODA [Suspect]
     Active Substance: CAPECITABINE
     Indication: COLORECTAL ADENOCARCINOMA
     Dosage: CYCLICAL,8
     Route: 048
  5. CAPECITABINE. [Suspect]
     Active Substance: CAPECITABINE
     Indication: COLORECTAL ADENOCARCINOMA
     Route: 065

REACTIONS (1)
  - Drug-induced liver injury [Recovering/Resolving]
